FAERS Safety Report 9932554 (Version 1)
Quarter: 2014Q1

REPORT INFORMATION
  Report Type: Spontaneous
  Country: US (occurrence: US)
  Receive Date: 20140228
  Receipt Date: 20140228
  Transmission Date: 20141002
  Serious: No
  Sender: FDA-Public Use
  Company Number: US-GLAXOSMITHKLINE-A1020639A

PATIENT
  Sex: Female

DRUGS (4)
  1. LAMOTRIGINE [Suspect]
     Indication: DEPRESSION
     Dosage: 100MG PER DAY
     Route: 048
  2. VALTREX [Suspect]
     Indication: HERPES VIRUS INFECTION
     Route: 048
  3. MULTIVITAMIN [Concomitant]
  4. OMEPRAZOLE [Concomitant]

REACTIONS (1)
  - Chromaturia [Not Recovered/Not Resolved]
